FAERS Safety Report 5922987-8 (Version None)
Quarter: 2008Q4

REPORT INFORMATION
  Report Type: 
  Country: None (occurrence: None)
  Receive Date: 20081018
  Receipt Date: 20081009
  Transmission Date: 20090506
  Serious: Yes (Hospitalization, Other)
  Sender: FDA-Public Use
  Company Number: PR-PFIZER INC-2008061799

PATIENT
  Age: 47 Year
  Sex: Male
  Weight: 128.4 kg

DRUGS (9)
  1. CELEBREX [Suspect]
     Indication: BACK PAIN
     Route: 048
  2. CELEBREX [Suspect]
     Indication: INTERVERTEBRAL DISC DISORDER
  3. ACETYLSALICYLIC ACID SRT [Concomitant]
     Route: 048
  4. AMARYL [Concomitant]
     Route: 048
  5. TOPROL-XL [Concomitant]
     Route: 048
  6. AVALIDE [Concomitant]
     Route: 048
  7. LANTUS [Concomitant]
  8. TRICOR [Concomitant]
     Route: 048
  9. PROTONIX [Concomitant]
     Route: 048

REACTIONS (1)
  - DEEP VEIN THROMBOSIS [None]
